FAERS Safety Report 13776657 (Version 1)
Quarter: 2017Q3

REPORT INFORMATION
  Report Type: Spontaneous
  Country: US (occurrence: US)
  Receive Date: 20170721
  Receipt Date: 20170721
  Transmission Date: 20171127
  Serious: Yes (Other)
  Sender: FDA-Public Use
  Company Number: US-ELI_LILLY_AND_COMPANY-US201707003881

PATIENT
  Age: 70 Year
  Sex: Male

DRUGS (8)
  1. HUMALOG [Suspect]
     Active Substance: INSULIN LISPRO
     Dosage: 27 U, EACH NOON BEFORE MEALS
     Route: 058
     Dates: start: 2014
  2. HUMALOG [Suspect]
     Active Substance: INSULIN LISPRO
     Dosage: 27 U, EACH NOON BEFORE MEALS
     Route: 058
     Dates: start: 2014
  3. HUMALOG [Suspect]
     Active Substance: INSULIN LISPRO
     Dosage: 37 U, EACH EVENING BEFORE MEALS
     Route: 058
     Dates: start: 2014
  4. VITAMIN D [Concomitant]
     Active Substance: CHOLECALCIFEROL
     Dosage: 50 MG, UNKNOWN
     Route: 065
  5. HUMALOG [Suspect]
     Active Substance: INSULIN LISPRO
     Indication: TYPE 2 DIABETES MELLITUS
     Dosage: 24 U, EACH MORNING BEFORE MEALS
     Route: 058
     Dates: start: 2014
  6. HUMALOG [Suspect]
     Active Substance: INSULIN LISPRO
     Dosage: 24 U, EACH MORNING BEFORE MEALS
     Route: 058
     Dates: start: 2014
  7. HUMALOG [Suspect]
     Active Substance: INSULIN LISPRO
     Dosage: 37 U, EACH EVENING BEFORE MEALS
     Route: 058
     Dates: start: 2014
  8. LEVEMIR [Concomitant]
     Active Substance: INSULIN DETEMIR
     Dosage: 44 U, EACH EVENING
     Route: 065

REACTIONS (4)
  - Eye pain [Unknown]
  - Hyphaema [Not Recovered/Not Resolved]
  - Glycosylated haemoglobin increased [Not Recovered/Not Resolved]
  - Eye naevus [Not Recovered/Not Resolved]

NARRATIVE: CASE EVENT DATE: 201706
